FAERS Safety Report 4610783-3 (Version None)
Quarter: 2005Q2

REPORT INFORMATION
  Report Type: 
  Country: None (occurrence: None)
  Receive Date: 20050301
  Receipt Date: 20041118
  Transmission Date: 20051028
  Serious: No
  Sender: FDA-Public Use
  Company Number: WAES 0412USA02710

PATIENT
  Sex: Female

DRUGS (5)
  1. ZETIA [Suspect]
     Dosage: PO
     Route: 048
  2. ALLEGRA [Concomitant]
  3. LEVOXYL [Concomitant]
  4. PREMPRO [Concomitant]
  5. TOPROL-XL [Concomitant]

REACTIONS (1)
  - ABDOMINAL PAIN [None]
